FAERS Safety Report 11825612 (Version 2)
Quarter: 2016Q4

REPORT INFORMATION
  Report Type: Spontaneous
  Country: US (occurrence: US)
  Receive Date: 20151211
  Receipt Date: 20161017
  Transmission Date: 20170206
  Serious: No
  Sender: FDA-Public Use
  Company Number: US-JNJFOC-20150620437

PATIENT
  Age: 74 Year
  Sex: Female

DRUGS (4)
  1. NEURONTIN [Concomitant]
     Active Substance: GABAPENTIN
     Indication: PAIN
  2. NEURONTIN [Concomitant]
     Active Substance: GABAPENTIN
     Indication: PRURITUS
  3. IMBRUVICA [Suspect]
     Active Substance: IBRUTINIB
     Indication: WALDENSTROM^S MACROGLOBULINAEMIA
     Route: 048
     Dates: start: 20150209
  4. GABAPENTIN. [Concomitant]
     Active Substance: GABAPENTIN

REACTIONS (14)
  - Rash [Unknown]
  - Oedema peripheral [Unknown]
  - Fatigue [Unknown]
  - Pain [Recovered/Resolved]
  - Pruritus [Not Recovered/Not Resolved]
  - Urticaria [Recovering/Resolving]
  - Constipation [Not Recovered/Not Resolved]
  - Rash pruritic [Unknown]
  - Blister [Recovered/Resolved]
  - Heart rate decreased [Unknown]
  - Fungal skin infection [Unknown]
  - Herpes zoster [Unknown]
  - Lymphadenopathy [Unknown]
  - Insomnia [Unknown]

NARRATIVE: CASE EVENT DATE: 2015
